FAERS Safety Report 19882639 (Version 3)
Quarter: 2021Q4

REPORT INFORMATION
  Report Type: Spontaneous
  Country: JP (occurrence: JP)
  Receive Date: 20210925
  Receipt Date: 20211026
  Transmission Date: 20220303
  Serious: Yes (Death)
  Sender: FDA-Public Use
  Company Number: JP-JNJFOC-20210936899

PATIENT
  Age: 70 Year
  Sex: Female

DRUGS (2)
  1. OPSUMIT [Suspect]
     Active Substance: MACITENTAN
     Indication: Pulmonary arterial hypertension
     Dosage: MACITENTAN:10MG
     Route: 048
     Dates: start: 20181126, end: 20210913
  2. ADCIRCA [Concomitant]
     Active Substance: TADALAFIL
     Route: 048

REACTIONS (1)
  - Pulmonary arterial hypertension [Fatal]
